FAERS Safety Report 21521757 (Version 2)
Quarter: 2023Q1

REPORT INFORMATION
  Report Type: Spontaneous
  Country: IL (occurrence: IL)
  Receive Date: 20221028
  Receipt Date: 20230324
  Transmission Date: 20230417
  Serious: Yes (Hospitalization, Congenital Anomaly)
  Sender: FDA-Public Use
  Company Number: IL-VERTEX PHARMACEUTICALS-2022-000077

PATIENT
  Age: 0 Year
  Sex: Male
  Weight: 3 kg

DRUGS (1)
  1. TRIKAFTA [Suspect]
     Active Substance: ELEXACAFTOR\IVACAFTOR\TEZACAFTOR
     Indication: Cystic fibrosis
     Dosage: FREQ UNKNOWN
     Route: 048
     Dates: start: 2020

REACTIONS (7)
  - Cataract congenital [Not Recovered/Not Resolved]
  - Intensive care [Unknown]
  - Transient tachypnoea of the newborn [Recovered/Resolved]
  - Meconium in amniotic fluid [Unknown]
  - Exposure via breast milk [Unknown]
  - Hyperinsulinaemia [Recovered/Resolved]
  - Hypoglycaemia neonatal [Recovered/Resolved]

NARRATIVE: CASE EVENT DATE: 20211201
